FAERS Safety Report 8974777 (Version 2)
Quarter: 2013Q2

REPORT INFORMATION
  Report Type: Spontaneous
  Country: FR (occurrence: FR)
  Receive Date: 20121220
  Receipt Date: 20130502
  Transmission Date: 20140414
  Serious: Yes (Hospitalization)
  Sender: FDA-Public Use
  Company Number: FR-GE HEALTHCARE MEDICAL DIAGNOSTICS-VISP-NO-1212S-0604

PATIENT
  Age: 78 Year
  Sex: Female

DRUGS (13)
  1. VISIPAQUE [Suspect]
     Indication: PRODUCT USED FOR UNKNOWN INDICATION
     Dosage: DOSE NOT REPORTED
     Route: 013
     Dates: start: 20121030, end: 20121030
  2. VISIPAQUE [Suspect]
     Indication: DIAGNOSTIC PROCEDURE
  3. IOMERON [Suspect]
     Indication: PRODUCT USED FOR UNKNOWN INDICATION
     Dosage: DOSE NOT REPORTED
     Route: 013
     Dates: start: 20121106, end: 20121106
  4. IOMERON [Suspect]
     Indication: DIAGNOSTIC PROCEDURE
  5. CORDARONE [Concomitant]
  6. DOLIPRANE [Concomitant]
  7. PREVISCAN [Concomitant]
  8. SIMVASTATINE [Concomitant]
  9. INNOHEP [Concomitant]
  10. LASILIX [Concomitant]
  11. BISOPROLOL [Concomitant]
  12. TRANSIPEG [Concomitant]
  13. LEVOTHYROX [Concomitant]

REACTIONS (3)
  - Drug eruption [Recovered/Resolved]
  - Pruritus [Recovered/Resolved]
  - Cough [Recovered/Resolved]
